FAERS Safety Report 19837087 (Version 1)
Quarter: 2021Q3

REPORT INFORMATION
  Report Type: Spontaneous
  Country: US (occurrence: US)
  Receive Date: 20210914
  Receipt Date: 20210914
  Transmission Date: 20211014
  Serious: No
  Sender: FDA-Public Use
  Company Number: US-ASTRAZENECA-2021A700977

PATIENT
  Sex: Male

DRUGS (1)
  1. LYNPARZA [Suspect]
     Active Substance: OLAPARIB
     Indication: PROSTATE CANCER
     Route: 048
     Dates: start: 202108

REACTIONS (5)
  - Condition aggravated [Unknown]
  - Weight decreased [Unknown]
  - Fatigue [Unknown]
  - Hypophagia [Unknown]
  - Decreased appetite [Recovering/Resolving]
